FAERS Safety Report 12549594 (Version 4)
Quarter: 2016Q3

REPORT INFORMATION
  Report Type: Spontaneous
  Country: US (occurrence: US)
  Receive Date: 20160712
  Receipt Date: 20160913
  Transmission Date: 20161109
  Serious: No
  Sender: FDA-Public Use
  Company Number: US-PFIZER INC-2016239015

PATIENT
  Age: 69 Year
  Sex: Female
  Weight: 85 kg

DRUGS (8)
  1. IBUPROFEN. [Concomitant]
     Active Substance: IBUPROFEN
     Indication: PAIN
     Dosage: 500 MG, UNK
  2. ULTRAM [Concomitant]
     Active Substance: TRAMADOL HYDROCHLORIDE
     Indication: PAIN
     Dosage: 50 MG, UNK
  3. PERCOCET [Concomitant]
     Active Substance: ACETAMINOPHEN\OXYCODONE HYDROCHLORIDE
     Indication: PAIN
     Dosage: UNK (OXYCODONE HYDROCHLORIDE, OXYCODONE TEREPHTHALATE 5MG, PARACETAMOL 325MG)
  4. LYRICA [Suspect]
     Active Substance: PREGABALIN
     Indication: DIABETIC NEUROPATHY
     Dosage: 50 MG, 3X/DAY
  5. LYRICA [Suspect]
     Active Substance: PREGABALIN
     Indication: TYPE 2 DIABETES MELLITUS
     Dosage: 75 MG, 2X/DAY
     Route: 048
  6. LYRICA [Suspect]
     Active Substance: PREGABALIN
     Indication: NERVOUS SYSTEM DISORDER
     Dosage: 50 MG, 2X/DAY
     Route: 048
     Dates: start: 20150925
  7. LYRICA [Suspect]
     Active Substance: PREGABALIN
     Indication: FIBROMYALGIA
     Dosage: 100 MG, 2X/DAY
     Route: 048
  8. LYRICA [Suspect]
     Active Substance: PREGABALIN
     Indication: NEUROPATHY PERIPHERAL

REACTIONS (11)
  - Drug ineffective [Unknown]
  - Drug dispensing error [Unknown]
  - Musculoskeletal disorder [Unknown]
  - Anxiety [Unknown]
  - Discomfort [Unknown]
  - Drug dose omission [Unknown]
  - Withdrawal syndrome [Unknown]
  - Incorrect dose administered [Unknown]
  - Pain [Recovering/Resolving]
  - Malaise [Unknown]
  - Burning sensation [Unknown]
